FAERS Safety Report 5284998-8 (Version None)
Quarter: 2007Q2

REPORT INFORMATION
  Report Type: 
  Country: None (occurrence: None)
  Receive Date: 20070403
  Receipt Date: 20070322
  Transmission Date: 20071010
  Serious: Yes (Other)
  Sender: FDA-Public Use
  Company Number: US-PFIZER INC-2007013848

PATIENT
  Sex: Female
  Weight: 71.7 kg

DRUGS (1)
  1. PREGABALIN [Suspect]
     Indication: NEURALGIA
     Dates: start: 20070101, end: 20070215

REACTIONS (3)
  - STOMATITIS [None]
  - SWOLLEN TONGUE [None]
  - TREMOR [None]
